FAERS Safety Report 23326948 (Version 1)
Quarter: 2023Q4

REPORT INFORMATION
  Report Type: Spontaneous
  Country: CN (occurrence: CN)
  Receive Date: 20231221
  Receipt Date: 20231221
  Transmission Date: 20240110
  Serious: Yes (Disabling, Other)
  Sender: FDA-Public Use
  Company Number: CN-PFIZER INC-PV202300203570

PATIENT
  Age: 64 Year
  Sex: Male
  Weight: 51 kg

DRUGS (5)
  1. EPIRUBICIN HYDROCHLORIDE [Suspect]
     Active Substance: EPIRUBICIN HYDROCHLORIDE
     Indication: Interventional procedure
     Dosage: 20 MG, 1X/DAY
     Route: 037
     Dates: start: 20231116, end: 20231116
  2. OXALIPLATIN [Suspect]
     Active Substance: OXALIPLATIN
     Indication: Interventional procedure
     Dosage: 100 MG, 1X/DAY
     Route: 037
     Dates: start: 20231116, end: 20231116
  3. RALTITREXED [Suspect]
     Active Substance: RALTITREXED
     Indication: Interventional procedure
     Dosage: 2 MG, 1X/DAY
     Route: 037
     Dates: start: 20231116, end: 20231116
  4. SODIUM CHLORIDE [Concomitant]
     Active Substance: SODIUM CHLORIDE
     Indication: Vehicle solution use
     Dosage: 100 ML, 1X/DAY
     Route: 037
     Dates: start: 20231116, end: 20231116
  5. DEXTROSE [Concomitant]
     Active Substance: DEXTROSE\DEXTROSE MONOHYDRATE
     Indication: Vehicle solution use
     Dosage: 100 ML, 1X/DAY
     Route: 037
     Dates: start: 20231116, end: 20231116

REACTIONS (2)
  - Transaminases increased [Recovering/Resolving]
  - Drug-induced liver injury [Unknown]

NARRATIVE: CASE EVENT DATE: 20231117
